FAERS Safety Report 18436745 (Version 8)
Quarter: 2021Q1

REPORT INFORMATION
  Report Type: Report from Study
  Country: US (occurrence: US)
  Receive Date: 20201028
  Receipt Date: 20210323
  Transmission Date: 20210419
  Serious: Yes (Other)
  Sender: FDA-Public Use
  Company Number: US-PFIZER INC-2020415855

PATIENT
  Age: 60 Year
  Sex: Female

DRUGS (2)
  1. IBRANCE [Suspect]
     Active Substance: PALBOCICLIB
     Indication: BREAST CANCER FEMALE
     Dosage: 125 MG, CYCLIC (ONCE DAILY, 21 DAYS ON, 7 DAYS OFF)
     Route: 048
     Dates: start: 202010, end: 202012
  2. IBRANCE [Suspect]
     Active Substance: PALBOCICLIB
     Dosage: 100 MG, CYCLIC (ONCE DAILY, 21 DAYS ON, 7 DAYS OFF)
     Route: 048
     Dates: start: 202012

REACTIONS (17)
  - Dry skin [Unknown]
  - Product dose omission issue [Unknown]
  - Muscular weakness [Unknown]
  - Lip dry [Unknown]
  - Weight decreased [Recovering/Resolving]
  - Chapped lips [Unknown]
  - Dehydration [Unknown]
  - Taste disorder [Unknown]
  - Anaemia [Recovering/Resolving]
  - Diarrhoea [Recovering/Resolving]
  - Vomiting [Recovering/Resolving]
  - Inflammation [Unknown]
  - Appetite disorder [Recovering/Resolving]
  - Laboratory test abnormal [Unknown]
  - Rash [Recovered/Resolved]
  - Leukopenia [Recovering/Resolving]
  - Nausea [Recovering/Resolving]

NARRATIVE: CASE EVENT DATE: 2020
